FAERS Safety Report 5681230-8 (Version None)
Quarter: 2008Q1

REPORT INFORMATION
  Report Type: 
  Country: None (occurrence: None)
  Receive Date: 20080326
  Receipt Date: 20070110
  Transmission Date: 20080703
  Serious: No
  Sender: FDA-Public Use
  Company Number: US-BAYER-US-2007-000941

PATIENT
  Age: 42 Year
  Sex: Female
  Weight: 80 kg

DRUGS (2)
  1. MIRENA [Suspect]
     Indication: CONTRACEPTION
     Route: 015
     Dates: start: 20061214, end: 20070109
  2. ALLERGY MEDICATION [Concomitant]

REACTIONS (3)
  - ABDOMINAL PAIN LOWER [None]
  - PAIN IN EXTREMITY [None]
  - PELVIC PAIN [None]
